FAERS Safety Report 16856730 (Version 2)
Quarter: 2019Q4

REPORT INFORMATION
  Report Type: Spontaneous
  Country: BE (occurrence: BE)
  Receive Date: 20190926
  Receipt Date: 20191106
  Transmission Date: 20200122
  Serious: Yes (Life-Threatening, Hospitalization)
  Sender: FDA-Public Use
  Company Number: BE-MYLANLABS-2019M1089654

PATIENT
  Age: 34 Year
  Sex: Male
  Weight: 68 kg

DRUGS (6)
  1. ENOXAPARIN [Concomitant]
     Active Substance: ENOXAPARIN
     Indication: PROPHYLAXIS
     Dosage: 40 MILLIGRAM, TOTAL
     Route: 058
     Dates: start: 20190311
  2. ONDANSETRON [Concomitant]
     Active Substance: ONDANSETRON
     Indication: PAIN
     Dosage: 16 MILLIGRAM, PRN
     Route: 040
     Dates: start: 20190311, end: 20190314
  3. PIPERACILLIN/TAZOBACTAM [Suspect]
     Active Substance: PIPERACILLIN SODIUM\TAZOBACTAM SODIUM
     Indication: PRODUCT USED FOR UNKNOWN INDICATION
     Dosage: INNAME OP 2U,8U,14U,20U
     Route: 017
     Dates: start: 20190318, end: 20190408
  4. PARACETAMOL [Concomitant]
     Active Substance: ACETAMINOPHEN
     Indication: PAIN
     Dosage: 4 DOSAGE FORM, QD
     Route: 048
     Dates: start: 20190311
  5. IBUPROFEN. [Suspect]
     Active Substance: IBUPROFEN
     Indication: INFLAMMATION
     Dosage: 3 DOSAGE FORM, QD
     Route: 048
     Dates: start: 20190318, end: 20190407
  6. TRAMADOL. [Concomitant]
     Active Substance: TRAMADOL
     Indication: PAIN
     Dosage: 4 DOSAGE FORM, PRN
     Route: 048
     Dates: start: 20190311, end: 20190311

REACTIONS (12)
  - Malaise [Recovering/Resolving]
  - Tachypnoea [Recovering/Resolving]
  - Pulmonary oedema [Recovering/Resolving]
  - Pyrexia [Recovering/Resolving]
  - Drug reaction with eosinophilia and systemic symptoms [Recovering/Resolving]
  - C-reactive protein increased [Recovering/Resolving]
  - Liver function test abnormal [Recovering/Resolving]
  - Lymphocytosis [Recovering/Resolving]
  - Eosinophilia [Recovering/Resolving]
  - Hypoxia [Recovering/Resolving]
  - Liver injury [Recovering/Resolving]
  - Rash [Recovering/Resolving]

NARRATIVE: CASE EVENT DATE: 20190406
